FAERS Safety Report 17752046 (Version 1)
Quarter: 2020Q2

REPORT INFORMATION
  Report Type: Spontaneous
  Country: JP (occurrence: JP)
  Receive Date: 20200506
  Receipt Date: 20200506
  Transmission Date: 20200714
  Serious: Yes (Other)
  Sender: FDA-Public Use
  Company Number: NVSC2020JP122240

PATIENT
  Age: 69 Year
  Sex: Male

DRUGS (1)
  1. PREDNISOLONE. [Suspect]
     Active Substance: PREDNISOLONE
     Indication: DERMATOMYOSITIS
     Dosage: 60 MG
     Route: 065

REACTIONS (5)
  - Colitis [Unknown]
  - Delirium [Unknown]
  - Cytomegalovirus infection reactivation [Unknown]
  - Myelitis [Unknown]
  - Renal disorder [Unknown]
